FAERS Safety Report 7982189-0 (Version None)
Quarter: 2011Q4

REPORT INFORMATION
  Report Type: 
  Country: None (occurrence: None)
  Receive Date: 20111213
  Receipt Date: 20111129
  Transmission Date: 20120403
  Serious: Yes (Hospitalization)
  Sender: FDA-Public Use
  Company Number: 2011S1024679

PATIENT
  Age: 67 Year
  Sex: Male
  Weight: 68.6746 kg

DRUGS (7)
  1. STALEVO 100 [Concomitant]
  2. DIGOXIN [Suspect]
     Dosage: ORAL
     Route: 048
     Dates: start: 20050531, end: 20051101
  3. BETAXOLOL HCL [Concomitant]
  4. CLONAZEPAM [Concomitant]
  5. SUNITINIB MALATE [Suspect]
     Indication: GASTROINTESTINAL STROMAL TUMOUR
     Dosage: 50 MG;DAILY;ORAL
     Route: 048
     Dates: start: 20051208
  6. SUNITINIB MALATE [Suspect]
     Indication: GASTROINTESTINAL STROMAL TUMOUR
     Dosage: 50 MG;DAILY;ORAL
     Route: 048
     Dates: start: 20051013, end: 20051105
  7. DOXAZOSIN MESYLATE [Concomitant]

REACTIONS (3)
  - RECTAL HAEMORRHAGE [None]
  - PANCYTOPENIA [None]
  - TOXICITY TO VARIOUS AGENTS [None]
